FAERS Safety Report 6611836-0 (Version None)
Quarter: 2010Q1

REPORT INFORMATION
  Report Type: 
  Country: None (occurrence: None)
  Receive Date: 20100303
  Receipt Date: 20100222
  Transmission Date: 20100710
  Serious: Yes (Hospitalization, Other)
  Sender: FDA-Public Use
  Company Number: US-AMGEN-QUU394381

PATIENT
  Sex: Male

DRUGS (4)
  1. ENBREL [Suspect]
     Indication: RHEUMATOID ARTHRITIS
     Route: 058
     Dates: start: 20030101
  2. ENBREL [Suspect]
     Indication: PSORIATIC ARTHROPATHY
  3. ENBREL [Suspect]
     Indication: PSORIASIS
  4. IMURAN [Concomitant]

REACTIONS (7)
  - ARTHRITIS [None]
  - BRONCHITIS [None]
  - DYSPNOEA [None]
  - LUNG ABSCESS [None]
  - PNEUMOTHORAX [None]
  - PSORIASIS [None]
  - SWELLING FACE [None]
